FAERS Safety Report 9803917 (Version 3)
Quarter: 2014Q1

REPORT INFORMATION
  Report Type: Report from Study
  Country: US (occurrence: US)
  Receive Date: 20140108
  Receipt Date: 20140204
  Transmission Date: 20141002
  Serious: Yes (Life-Threatening, Hospitalization, Disabling)
  Sender: FDA-Public Use
  Company Number: US-PFIZER INC-2014001859

PATIENT
  Age: 58 Year
  Sex: Female

DRUGS (5)
  1. OXALIPLATIN [Suspect]
     Indication: COLORECTAL CANCER
     Dosage: 155 MG,1 IN 2 WK
     Route: 042
     Dates: start: 20131001
  2. IRINOTECAN HCL [Suspect]
     Indication: COLORECTAL CANCER
     Dosage: 300 MG,1 IN 2 WK
     Route: 042
     Dates: start: 20131001
  3. FLUOROURACIL [Suspect]
     Indication: COLORECTAL CANCER
     Dosage: 3200 MG, 1 IN 2 WK
     Route: 042
     Dates: start: 20131001
  4. BEVACIZUMAB [Suspect]
     Indication: COLORECTAL CANCER
     Dosage: 347 MG,1 IN 2 WK
     Route: 042
     Dates: start: 20131001
  5. LEUCOVORIN [Suspect]
     Indication: COLORECTAL CANCER
     Dosage: 180 MG,1 IN 2 WK
     Route: 042
     Dates: start: 20131001

REACTIONS (1)
  - Non-cardiac chest pain [Recovered/Resolved]
